FAERS Safety Report 15041574 (Version 2)
Quarter: 2018Q2

REPORT INFORMATION
  Report Type: Report from Study
  Country: US (occurrence: US)
  Receive Date: 20180621
  Receipt Date: 20180629
  Transmission Date: 20180711
  Serious: Yes (Other)
  Sender: FDA-Public Use
  Company Number: US-AMGEN-USASL2018083139

PATIENT
  Sex: Female

DRUGS (1)
  1. ENBREL [Suspect]
     Active Substance: ETANERCEPT
     Indication: RHEUMATOID ARTHRITIS
     Dosage: 50 MG, QWK
     Route: 065
     Dates: start: 2016

REACTIONS (7)
  - Injection site pain [Unknown]
  - Limb injury [Unknown]
  - Wrong technique in product usage process [Unknown]
  - Rheumatoid arthritis [Recovering/Resolving]
  - Purpura [Unknown]
  - Skin haemorrhage [Unknown]
  - Contusion [Unknown]
